FAERS Safety Report 7875220-4 (Version None)
Quarter: 2011Q4

REPORT INFORMATION
  Report Type: 
  Country: None (occurrence: None)
  Receive Date: 20111031
  Receipt Date: 20111021
  Transmission Date: 20120403
  Serious: Yes (Other)
  Sender: FDA-Public Use
  Company Number: US-ASTELLAS-2011US006704

PATIENT
  Sex: Male
  Weight: 85 kg

DRUGS (12)
  1. MYCELEX [Concomitant]
     Indication: PRODUCT USED FOR UNKNOWN INDICATION
     Dosage: 10 MG, BID
     Route: 065
  2. VALCYTE [Concomitant]
     Indication: PRODUCT USED FOR UNKNOWN INDICATION
     Dosage: 450 MG, UID/QD
     Route: 065
  3. AMEVIVE [Suspect]
     Dosage: 15 MG, WEEKLY X 12 WKS
     Route: 058
  4. SIMVASTATIN [Concomitant]
     Indication: PRODUCT USED FOR UNKNOWN INDICATION
     Dosage: 20 MG, UID/QD
     Route: 065
  5. BACTRIM [Concomitant]
     Indication: PRODUCT USED FOR UNKNOWN INDICATION
     Dosage: 1 DF, UID/QD
     Route: 065
  6. AMEVIVE [Suspect]
     Dosage: 15 MG, MONTHLY
     Route: 058
     Dates: end: 20110210
  7. AMEVIVE [Suspect]
     Indication: RENAL TRANSPLANT
     Dosage: 7.5 MG POD 0 + 2
     Route: 042
     Dates: start: 20101119
  8. LEVOTHYROXINE SODIUM [Concomitant]
     Indication: PRODUCT USED FOR UNKNOWN INDICATION
     Dosage: 50 UG, UID/QD
     Route: 065
  9. OMEPRAZOLE [Concomitant]
     Indication: PRODUCT USED FOR UNKNOWN INDICATION
     Dosage: 20 MG, UID/QD
     Route: 065
  10. CLONIDINE [Concomitant]
     Indication: PRODUCT USED FOR UNKNOWN INDICATION
     Dosage: 0.3 MG, UID/QD
     Route: 065
  11. COLCHICINE [Concomitant]
     Indication: GOUT
     Dosage: UNK
     Route: 065
  12. MYFORTIC [Concomitant]
     Indication: PRODUCT USED FOR UNKNOWN INDICATION
     Dosage: 900 MG, BID
     Route: 065

REACTIONS (2)
  - OFF LABEL USE [None]
  - KIDNEY TRANSPLANT REJECTION [None]
